FAERS Safety Report 8455103-1 (Version None)
Quarter: 2012Q2

REPORT INFORMATION
  Report Type: 
  Country: None (occurrence: None)
  Receive Date: 20120614
  Receipt Date: 20120504
  Transmission Date: 20120825
  Serious: Yes (Other)
  Sender: FDA-Public Use
  Company Number: MC201200300

PATIENT
  Weight: 70.8 kg

DRUGS (1)
  1. ANGIOMAX [Suspect]
     Indication: PERCUTANEOUS CORONARY INTERVENTION
     Dosage: 10 ML, BOLUS, INTRAVENOUS ; 24.8 ML, HR, INTRAVENOUS
     Route: 042

REACTIONS (2)
  - COAGULATION TIME PROLONGED [None]
  - VENTRICULAR TACHYCARDIA [None]
